FAERS Safety Report 19593121 (Version 1)
Quarter: 2021Q3

REPORT INFORMATION
  Report Type: Spontaneous
  Country: US (occurrence: US)
  Receive Date: 20210722
  Receipt Date: 20210722
  Transmission Date: 20211014
  Serious: No
  Sender: FDA-Public Use
  Company Number: US-APOTEX-2021AP006270

PATIENT
  Sex: Male

DRUGS (1)
  1. ATOMOXETINE CAPSULES USP [Suspect]
     Active Substance: ATOMOXETINE
     Indication: PRODUCT USED FOR UNKNOWN INDICATION
     Dosage: 40 MILLIGRAM, QD
     Route: 065
     Dates: end: 202102

REACTIONS (3)
  - Agitation [Recovered/Resolved]
  - Suspected product quality issue [Unknown]
  - Insomnia [Recovered/Resolved]
